FAERS Safety Report 4440284-7 (Version None)
Quarter: 2004Q3

REPORT INFORMATION
  Report Type: 
  Country: None (occurrence: None)
  Receive Date: 20040831
  Receipt Date: 20040824
  Transmission Date: 20050211
  Serious: Yes (Hospitalization)
  Sender: FDA-Public Use
  Company Number: STA-AE-04-MTX-382

PATIENT
  Age: 68 Year
  Sex: Female

DRUGS (2)
  1. METHOTREXATE [Suspect]
     Dosage: 15 MG
  2. ENBREL [Suspect]
     Dosage: SC
     Route: 058

REACTIONS (2)
  - BURSITIS [None]
  - WOUND INFECTION [None]
